FAERS Safety Report 4459724-2 (Version None)
Quarter: 2004Q3

REPORT INFORMATION
  Report Type: 
  Country: None (occurrence: None)
  Receive Date: 20040922
  Receipt Date: 20040922
  Transmission Date: 20050211
  Serious: Yes (Hospitalization)
  Sender: FDA-Public Use
  Company Number: None

PATIENT
  Age: 61 Year
  Sex: Male
  Weight: 113.3993 kg

DRUGS (3)
  1. ABILIFY [Suspect]
     Indication: MANIA
     Dosage: 15MG  PO QD
     Route: 048
  2. LOPRESSOR [Concomitant]
  3. ASPIRIN [Concomitant]

REACTIONS (1)
  - ATRIAL FIBRILLATION [None]
